FAERS Safety Report 6357247-7 (Version None)
Quarter: 2009Q3

REPORT INFORMATION
  Report Type: 
  Country: None (occurrence: None)
  Receive Date: 20090916
  Receipt Date: 20080424
  Transmission Date: 20100115
  Serious: Yes (Life-Threatening, Hospitalization)
  Sender: FDA-Public Use
  Company Number: PHEH2008US11615

PATIENT
  Sex: Male
  Weight: 95 kg

DRUGS (2)
  1. EXJADE [Suspect]
     Indication: MYELODYSPLASTIC SYNDROME
     Dosage: 2000 MG, QD
     Route: 048
     Dates: start: 20080201, end: 20080301
  2. EXJADE [Suspect]
     Indication: HAEMOCHROMATOSIS

REACTIONS (3)
  - BLOOD GLUCOSE ABNORMAL [None]
  - RENAL DISORDER [None]
  - SERUM FERRITIN INCREASED [None]
